FAERS Safety Report 19218265 (Version 1)
Quarter: 2021Q2

REPORT INFORMATION
  Report Type: Spontaneous
  Country: US (occurrence: US)
  Receive Date: 20210502
  Receipt Date: 20210502
  Transmission Date: 20210717
  Serious: No
  Sender: FDA-Public Use
  Company Number: US-009507513-2104USA005127

PATIENT
  Age: 51 Year
  Sex: Male

DRUGS (2)
  1. TEMODAR [Concomitant]
     Active Substance: TEMOZOLOMIDE
     Indication: GLIOBLASTOMA
     Route: 048
  2. KEYTRUDA [Suspect]
     Active Substance: PEMBROLIZUMAB
     Indication: GLIOBLASTOMA
     Dosage: UNK
     Route: 042
     Dates: start: 20210329

REACTIONS (3)
  - Pain [Unknown]
  - Arthralgia [Unknown]
  - Swelling [Unknown]

NARRATIVE: CASE EVENT DATE: 2021
